FAERS Safety Report 9026844 (Version 1)
Quarter: 2013Q1

REPORT INFORMATION
  Report Type: Spontaneous
  Country: SE (occurrence: SE)
  Receive Date: 20130123
  Receipt Date: 20130123
  Transmission Date: 20140127
  Serious: Yes (Disabling)
  Sender: FDA-Public Use
  Company Number: SE-PFIZER INC-2013027716

PATIENT
  Age: 70 Year
  Sex: Male

DRUGS (3)
  1. CHAMPIX [Suspect]
     Indication: SMOKING CESSATION THERAPY
     Dosage: UNK
     Dates: start: 20110715, end: 20110922
  2. SYMBICORT TURBOHALER [Concomitant]
     Dosage: BUDESONIDE 320?G / FORMOTEROL FUMARATE 9?G
  3. ACETYLCYSTEINE [Concomitant]
     Dosage: 200 MG, UNK

REACTIONS (1)
  - Trigeminal neuralgia [Not Recovered/Not Resolved]
